FAERS Safety Report 20473525 (Version 8)
Quarter: 2022Q4

REPORT INFORMATION
  Report Type: Report from Study
  Country: DE (occurrence: None)
  Receive Date: 20220215
  Receipt Date: 20221018
  Transmission Date: 20230112
  Serious: Yes (Hospitalization)
  Sender: FDA-Public Use
  Company Number: DE-ROCHE-3018739

PATIENT
  Age: 55 Year
  Sex: Male
  Weight: 74.2 kg

DRUGS (6)
  1. TRASTUZUMAB [Suspect]
     Active Substance: TRASTUZUMAB
     Indication: HER2 positive gastric cancer
     Dosage: ON 03/JAN/2022, RECEIVED LAST DOSE OF TRASTUZUMAB.
     Route: 042
     Dates: start: 20211111
  2. PERTUZUMAB [Suspect]
     Active Substance: PERTUZUMAB
     Indication: HER2 positive gastric cancer
     Dosage: ON 11/NOV/2021, RECEIVED LAST DOSE OF TRASTUZUMAB.
     Route: 042
     Dates: start: 20211111
  3. FLUOROURACIL [Suspect]
     Active Substance: FLUOROURACIL
     Indication: HER2 positive gastric cancer
     Dosage: ON 22/DEC/2021, RECEIVED LAST DOSE OF FLUOROURACIL
     Route: 042
     Dates: start: 20211111
  4. DOCETAXEL [Suspect]
     Active Substance: DOCETAXEL
     Indication: HER2 positive gastric cancer
     Dosage: ON 22/DEC/2021, RECEIVED LAST DOSE OF DOCETAXEL
     Route: 042
     Dates: start: 20211111
  5. OXALIPLATIN [Suspect]
     Active Substance: OXALIPLATIN
     Indication: HER2 positive gastric cancer
     Dosage: ON 22/DEC/2021, RECEIVED LAST DOSE OF OXALIPLATIN
     Route: 042
     Dates: start: 20211111
  6. LEUCOVORIN [Suspect]
     Active Substance: LEUCOVORIN
     Indication: HER2 positive gastric cancer
     Dosage: ON 22/DEC/2021, RECEIVED LAST DOSE OF LEUCOVORIN
     Route: 042
     Dates: start: 20211111

REACTIONS (4)
  - Anastomotic complication [Recovered/Resolved]
  - Oesophagobronchial fistula [Recovered/Resolved]
  - Bronchial injury [Recovered/Resolved]
  - Pneumonia [Recovered/Resolved]

NARRATIVE: CASE EVENT DATE: 20220201
